FAERS Safety Report 4596896-3 (Version None)
Quarter: 2005Q1

REPORT INFORMATION
  Report Type: 
  Country: None (occurrence: None)
  Receive Date: 20050228
  Receipt Date: 20050210
  Transmission Date: 20050727
  Serious: Yes (Other)
  Sender: FDA-Public Use
  Company Number: 141215USA

PATIENT
  Age: 28 Year
  Sex: Female

DRUGS (1)
  1. NORTRIPTYLINE HCL [Suspect]
     Indication: SOMNOLENCE
     Dosage: 25 MILLIGRAM QD ORAL
     Route: 048
     Dates: start: 20050114, end: 20050116

REACTIONS (1)
  - FACIAL PALSY [None]
